FAERS Safety Report 21039443 (Version 2)
Quarter: 2022Q3

REPORT INFORMATION
  Report Type: Spontaneous
  Country: US (occurrence: US)
  Receive Date: 20220704
  Receipt Date: 20220730
  Transmission Date: 20221027
  Serious: No
  Sender: FDA-Public Use
  Company Number: US-JNJFOC-20220639532

PATIENT
  Age: 59 Year
  Sex: Female
  Weight: 69.008 kg

DRUGS (2)
  1. TREMFYA [Suspect]
     Active Substance: GUSELKUMAB
     Indication: Rheumatoid arthritis
     Route: 065
     Dates: start: 202112
  2. PREDNISONE [Concomitant]
     Active Substance: PREDNISONE
     Indication: Rheumatoid arthritis

REACTIONS (3)
  - Product dose omission issue [Unknown]
  - Product quality issue [Unknown]
  - Off label use [Unknown]

NARRATIVE: CASE EVENT DATE: 20220617
